FAERS Safety Report 13587214 (Version 1)
Quarter: 2017Q2

REPORT INFORMATION
  Report Type: Spontaneous
  Country: US (occurrence: US)
  Receive Date: 20170526
  Receipt Date: 20170526
  Transmission Date: 20170830
  Serious: No
  Sender: FDA-Public Use
  Company Number: US-BAYER-2017-099198

PATIENT
  Sex: Female

DRUGS (2)
  1. BILTRICIDE [Suspect]
     Active Substance: PRAZIQUANTEL
     Indication: INFECTION PARASITIC
     Dosage: UNK
     Route: 048
  2. BILTRICIDE [Suspect]
     Active Substance: PRAZIQUANTEL
     Indication: INFECTION PARASITIC
     Dosage: UNK
     Route: 048

REACTIONS (6)
  - Oropharyngeal discomfort [None]
  - Crying [None]
  - Adverse event [None]
  - Chest pain [None]
  - Nasal discomfort [None]
  - Disease recurrence [None]
